FAERS Safety Report 19321301 (Version 2)
Quarter: 2021Q2

REPORT INFORMATION
  Report Type: Spontaneous
  Country: IT (occurrence: IT)
  Receive Date: 20210527
  Receipt Date: 20210613
  Transmission Date: 20210717
  Serious: Yes (Hospitalization)
  Sender: FDA-Public Use
  Company Number: IT-BIOGEN-2021BI01009595

PATIENT
  Age: 8 Year
  Sex: Male
  Weight: 22 kg

DRUGS (5)
  1. SPINRAZA [Suspect]
     Active Substance: NUSINERSEN
     Indication: SPINAL MUSCULAR ATROPHY
     Route: 037
     Dates: start: 20170101
  2. SPINRAZA [Suspect]
     Active Substance: NUSINERSEN
     Route: 065
     Dates: start: 20170513
  3. SPINRAZA [Suspect]
     Active Substance: NUSINERSEN
     Route: 037
     Dates: start: 20210429
  4. SPINRAZA [Suspect]
     Active Substance: NUSINERSEN
     Dosage: LOADING DOSE; PLUS 10 MAINTENANCE DOSES
     Route: 065
  5. SPINRAZA [Suspect]
     Active Substance: NUSINERSEN
     Dosage: 1 CYCLICAL
     Route: 037
     Dates: start: 2018

REACTIONS (6)
  - Cerebrospinal fluid leakage [Recovered/Resolved]
  - Post lumbar puncture syndrome [Recovered/Resolved]
  - Injection site swelling [Recovered/Resolved]
  - Pyrexia [Not Recovered/Not Resolved]
  - Injection site extravasation [Not Recovered/Not Resolved]
  - Post procedural swelling [Recovered/Resolved]

NARRATIVE: CASE EVENT DATE: 20210429
